FAERS Safety Report 5276416-0 (Version None)
Quarter: 2007Q1

REPORT INFORMATION
  Report Type: 
  Country: None (occurrence: None)
  Receive Date: 20061213
  Receipt Date: 20031007
  Transmission Date: 20070707
  Serious: Yes (Disabling)
  Sender: FDA-Public Use
  Company Number: 2003UW12936

PATIENT
  Sex: Female

DRUGS (4)
  1. SEROQUEL [Suspect]
     Dosage: 200 MG TID AND 600 MG HS
  2. WELLBUTRIN [Concomitant]
  3. BUSPAR [Concomitant]
  4. TOPAMAX [Concomitant]

REACTIONS (2)
  - ASTHENIA [None]
  - OVERDOSE [None]
